FAERS Safety Report 11160004 (Version 2)
Quarter: 2015Q2

REPORT INFORMATION
  Report Type: Spontaneous
  Country: CA (occurrence: CA)
  Receive Date: 20150603
  Receipt Date: 20150605
  Transmission Date: 20150821
  Serious: Yes (Hospitalization, Other)
  Sender: FDA-Public Use
  Company Number: CA-GILEAD-2015-0155795

PATIENT
  Age: 56 Year
  Sex: Female
  Weight: 85 kg

DRUGS (2)
  1. HARVONI [Suspect]
     Active Substance: LEDIPASVIR\SOFOSBUVIR
     Indication: PRODUCT USED FOR UNKNOWN INDICATION
     Dosage: 1 DF, UNK
     Route: 048
     Dates: start: 20150519
  2. SYNTHROID [Concomitant]
     Active Substance: LEVOTHYROXINE SODIUM
     Indication: HYPOTHYROIDISM
     Dosage: 0.625 UG, QD
     Route: 048

REACTIONS (7)
  - Blindness transient [Unknown]
  - Visual impairment [Unknown]
  - Migraine [Unknown]
  - Headache [Recovered/Resolved]
  - Photopsia [Unknown]
  - Vomiting [Recovered/Resolved]
  - Metamorphopsia [Unknown]

NARRATIVE: CASE EVENT DATE: 20150527
